FAERS Safety Report 4276703-9 (Version None)
Quarter: 2004Q1

REPORT INFORMATION
  Report Type: 
  Country: None (occurrence: None)
  Receive Date: 20040120
  Receipt Date: 20040107
  Transmission Date: 20041129
  Serious: Yes (Hospitalization)
  Sender: FDA-Public Use
  Company Number: JP-JNJFOC-20031204884

PATIENT
  Age: 89 Year
  Sex: Female
  Weight: 37 kg

DRUGS (12)
  1. GALANTAMINE - BLINDED (GALATAMINE) [Suspect]
     Indication: DEMENTIA ALZHEIMER'S TYPE
     Dosage: SEE IMAGE
     Route: 048
     Dates: start: 20030909, end: 20031007
  2. GALANTAMINE - BLINDED (GALATAMINE) [Suspect]
     Indication: DEMENTIA ALZHEIMER'S TYPE
     Dosage: SEE IMAGE
     Route: 048
     Dates: start: 20031007, end: 20031104
  3. GALANTAMINE - BLINDED (GALATAMINE) [Suspect]
     Indication: DEMENTIA ALZHEIMER'S TYPE
     Dosage: SEE IMAGE
     Route: 048
     Dates: start: 20031104, end: 20031118
  4. PLACEBO (PLACEBO) TABLETS [Suspect]
     Indication: DEMENTIA ALZHEIMER'S TYPE
     Dosage: 8 MG IN 1 DAY ORAL
     Route: 048
     Dates: start: 20030909, end: 20031007
  5. PLACEBO (PLACEBO) TABLETS [Suspect]
     Indication: DEMENTIA ALZHEIMER'S TYPE
     Dosage: 8 MG IN 1 DAY ORAL
     Route: 048
     Dates: start: 20031007, end: 20031104
  6. PLACEBO (PLACEBO) TABLETS [Suspect]
     Indication: DEMENTIA ALZHEIMER'S TYPE
     Dosage: 8 MG IN 1 DAY ORAL
     Route: 048
     Dates: start: 20031104, end: 20031118
  7. ALTAT (CAPSULES) ROXATIDINE ACETATE HYDROCHLORIDE [Concomitant]
  8. TOWARAT-L (NIFEDIPINE) [Concomitant]
  9. DIASERAL - L (ISOSORBIDE DINITRATE) TABLETS [Concomitant]
  10. SAYMOTIN S (KALLINDINOGENASE) TABLETS [Concomitant]
  11. MEDAZEPAM (MEDAZEPAM) TABLETS [Concomitant]
  12. CHLORPROMAZINE HCL [Concomitant]

REACTIONS (4)
  - FACE OEDEMA [None]
  - HEPATIC FUNCTION ABNORMAL [None]
  - HEPATIC NEOPLASM [None]
  - PANCREATIC NEOPLASM [None]
